FAERS Safety Report 7679095-8 (Version None)
Quarter: 2011Q3

REPORT INFORMATION
  Report Type: 
  Country: None (occurrence: None)
  Receive Date: 20110812
  Receipt Date: 20110808
  Transmission Date: 20111222
  Serious: Yes (Hospitalization, Other)
  Sender: FDA-Public Use
  Company Number: US-AMGEN-USASP2011039567

PATIENT
  Age: 16 Year
  Sex: Male

DRUGS (4)
  1. CORTICOSTEROIDS [Concomitant]
  2. RITUXIMAB [Concomitant]
  3. NPLATE [Suspect]
     Indication: MYELODYSPLASTIC SYNDROME
     Dosage: 5 A?G/KG, UNK
     Dates: start: 20110105
  4. IVIGLOB-EX [Concomitant]

REACTIONS (5)
  - PROTEINURIA [None]
  - THROMBOCYTOPENIA [None]
  - EPSTEIN-BARR VIRUS ASSOCIATED LYMPHOPROLIFERATIVE DISORDER [None]
  - HOSPITALISATION [None]
  - NEPHRITIS [None]
